FAERS Safety Report 12778189 (Version 3)
Quarter: 2017Q1

REPORT INFORMATION
  Report Type: Spontaneous
  Country: US (occurrence: US)
  Receive Date: 20160925
  Receipt Date: 20170215
  Transmission Date: 20170428
  Serious: No
  Sender: FDA-Public Use
  Company Number: US-BIOGEN-2016BI00292165

PATIENT
  Sex: Female

DRUGS (1)
  1. AVONEX [Suspect]
     Active Substance: INTERFERON BETA-1A
     Indication: MULTIPLE SCLEROSIS
     Route: 030
     Dates: start: 20090212, end: 20110212

REACTIONS (11)
  - Hot flush [Not Recovered/Not Resolved]
  - Drug ineffective [Recovered/Resolved]
  - Glaucoma [Recovered/Resolved]
  - Menopause [Not Recovered/Not Resolved]
  - Malaise [Recovered/Resolved]
  - Chills [Recovered/Resolved]
  - Needle issue [Unknown]
  - Multiple sclerosis relapse [Recovered/Resolved]
  - Vomiting [Recovered/Resolved]
  - Pyrexia [Recovered/Resolved]
  - Cataract [Recovered/Resolved]

NARRATIVE: CASE EVENT DATE: 2009
